FAERS Safety Report 6318532-8 (Version None)
Quarter: 2009Q3

REPORT INFORMATION
  Report Type: 
  Country: None (occurrence: None)
  Receive Date: 20090821
  Receipt Date: 20090813
  Transmission Date: 20100115
  Serious: Yes (Other)
  Sender: FDA-Public Use
  Company Number: PHHY2008IE28851

PATIENT
  Sex: Male

DRUGS (6)
  1. CLOZARIL [Suspect]
     Indication: PSYCHOTIC DISORDER
     Dosage: 900 MG/DAY
     Dates: start: 19931028
  2. CLOZARIL [Suspect]
     Dosage: 750 MG/DAY
  3. AMISULPRIDE [Concomitant]
     Indication: MAMMOPLASTY
     Dosage: 10 MG
     Route: 048
     Dates: start: 20060810
  4. CLONAZEPAM [Concomitant]
     Indication: AGITATION
     Dosage: 3 MG
     Route: 048
  5. FLUOXETINE [Concomitant]
     Indication: OBSESSIVE-COMPULSIVE DISORDER
     Dosage: 20 MG
     Route: 048
     Dates: start: 20080923, end: 20081024
  6. KWELLS [Concomitant]
     Dosage: 2 TABLETS
     Route: 048

REACTIONS (6)
  - BLOOD PROLACTIN INCREASED [None]
  - DROOLING [None]
  - DRUG LEVEL INCREASED [None]
  - MEMORY IMPAIRMENT [None]
  - SALIVARY HYPERSECRETION [None]
  - SOMNOLENCE [None]
